FAERS Safety Report 6047938-X (Version None)
Quarter: 2009Q1

REPORT INFORMATION
  Report Type: 
  Country: None (occurrence: None)
  Receive Date: 20090123
  Receipt Date: 20090112
  Transmission Date: 20090719
  Serious: Yes (Life-Threatening, Hospitalization)
  Sender: FDA-Public Use
  Company Number: AU-RB-008122-09

PATIENT
  Age: 32 Year
  Sex: Male

DRUGS (8)
  1. BUPRENORPHINE HCL [Suspect]
     Route: 060
     Dates: start: 19971105, end: 19971105
  2. BUPRENORPHINE HCL [Suspect]
     Route: 060
     Dates: start: 19971106, end: 19971106
  3. BUPRENORPHINE HCL [Suspect]
     Route: 060
     Dates: start: 19971109, end: 19971109
  4. CANNABIS [Concomitant]
     Indication: DRUG USE FOR UNKNOWN INDICATION
     Dosage: DOSING INFORMATION UNKNOWN
  5. INSULIN [Concomitant]
     Indication: DRUG USE FOR UNKNOWN INDICATION
     Dosage: DOSING INFORMATION UNKNOWN
  6. DIAZEPAM [Concomitant]
     Indication: DRUG USE FOR UNKNOWN INDICATION
     Dosage: DOSING INFORMATION UNKNOWN
  7. HEROIN [Concomitant]
     Indication: DRUG USE FOR UNKNOWN INDICATION
     Dosage: DOSING INFORMATION UNKNOWN
  8. BENZODIAZEPINE [Concomitant]
     Indication: DRUG USE FOR UNKNOWN INDICATION
     Dosage: DOSING INFORMATION UNKNOWN

REACTIONS (3)
  - HYPERHIDROSIS [None]
  - SUICIDE ATTEMPT [None]
  - TREMOR [None]
